FAERS Safety Report 13322980 (Version 1)
Quarter: 2017Q1

REPORT INFORMATION
  Report Type: Spontaneous
  Country: GB (occurrence: GB)
  Receive Date: 20170310
  Receipt Date: 20170310
  Transmission Date: 20170428
  Serious: Yes (Other)
  Sender: FDA-Public Use
  Company Number: GB-FRESENIUS KABI-FK201702030

PATIENT
  Age: 47 Year
  Sex: Male
  Weight: 121 kg

DRUGS (4)
  1. FENTANYL. [Concomitant]
     Active Substance: FENTANYL
     Indication: SURGERY
     Route: 065
     Dates: start: 20170223, end: 20170223
  2. ONDANSETRON (MANUFACTURER UNKNOWN) [Suspect]
     Active Substance: ONDANSETRON
     Indication: PROCEDURAL NAUSEA
     Route: 042
     Dates: start: 20170223, end: 20170223
  3. DEXAMETHASONE. [Concomitant]
     Active Substance: DEXAMETHASONE
     Indication: SURGERY
     Route: 065
     Dates: start: 20170223, end: 20170223
  4. PROPOFOL. [Concomitant]
     Active Substance: PROPOFOL
     Indication: SURGERY
     Route: 065
     Dates: start: 20170223, end: 20170223

REACTIONS (5)
  - Dysarthria [Recovered/Resolved]
  - Incoherent [Recovered/Resolved]
  - Dyskinesia [Recovered/Resolved]
  - Dystonia [Recovered/Resolved]
  - Retching [Recovered/Resolved]

NARRATIVE: CASE EVENT DATE: 20170223
